FAERS Safety Report 21883515 (Version 1)
Quarter: 2023Q1

REPORT INFORMATION
  Report Type: Spontaneous
  Country: US (occurrence: US)
  Receive Date: 20230119
  Receipt Date: 20230119
  Transmission Date: 20230417
  Serious: No
  Sender: FDA-Public Use
  Company Number: US-SUN PHARMACEUTICAL INDUSTRIES LTD-2022R1-347686

PATIENT

DRUGS (1)
  1. GANIRELIX ACETATE [Suspect]
     Active Substance: GANIRELIX ACETATE
     Indication: Product used for unknown indication
     Dosage: UNK
     Route: 065

REACTIONS (2)
  - Product use complaint [Unknown]
  - Needle issue [Unknown]
